FAERS Safety Report 9608918 (Version 1)
Quarter: 2013Q4

REPORT INFORMATION
  Report Type: Spontaneous
  Country: FR (occurrence: None)
  Receive Date: 20131007
  Receipt Date: 20131007
  Transmission Date: 20140711
  Serious: Yes (Other)
  Sender: FDA-Public Use
  Company Number: 1932984

PATIENT
  Age: 39 Year
  Sex: Male

DRUGS (5)
  1. VINCRISTINE SULFATE [Suspect]
     Indication: PLASMA CELL MYELOMA
  2. ADRIAMYCIN [Suspect]
     Indication: PLASMA CELL MYELOMA
  3. DEXAMETHASONE [Suspect]
     Indication: PLASMA CELL MYELOMA
  4. CYCLOPHOSPHAMIDE [Suspect]
     Indication: PLASMA CELL MYELOMA
  5. BORTEZOMIB [Suspect]
     Indication: PLASMA CELL MYELOMA

REACTIONS (4)
  - Neuropathy peripheral [None]
  - Amnesia [None]
  - Disturbance in attention [None]
  - Cognitive disorder [None]
